FAERS Safety Report 24569356 (Version 1)
Quarter: 2024Q4

REPORT INFORMATION
  Report Type: Spontaneous
  Country: ES (occurrence: ES)
  Receive Date: 20241031
  Receipt Date: 20241031
  Transmission Date: 20250115
  Serious: Yes (Other)
  Sender: PFIZER
  Company Number: ES-ROCHE-10000108394

PATIENT
  Age: 69 Year
  Sex: Male
  Weight: 63.9 kg

DRUGS (9)
  1. AXITINIB [Suspect]
     Active Substance: AXITINIB
     Indication: Metastatic renal cell carcinoma
     Dosage: 10 MG
     Route: 048
     Dates: start: 20240301
  2. TIRAGOLUMAB [Suspect]
     Active Substance: TIRAGOLUMAB
     Indication: Metastatic renal cell carcinoma
     Dosage: 600 MG, EVERY 3 WEEKS (DOSAGE FORM:  INFUSION)
     Route: 042
     Dates: start: 20240301
  3. TOBEMSTOMIG [Suspect]
     Active Substance: TOBEMSTOMIG
     Indication: Metastatic renal cell carcinoma
     Dosage: 600 MG, EVERY 3 WEEKS (DOSAGE FORM: INFUSION)
     Route: 042
     Dates: start: 20240301
  4. TRAMADOL [Concomitant]
     Active Substance: TRAMADOL
     Indication: Back pain
     Dosage: UNK, AS NEEDED
     Route: 048
     Dates: start: 202208
  5. TRAMADOL [Concomitant]
     Active Substance: TRAMADOL
     Indication: Prophylaxis
  6. ACETAMINOPHEN [Concomitant]
     Active Substance: ACETAMINOPHEN
     Indication: Back pain
     Dosage: UNK, AS NEEDED
     Route: 048
     Dates: start: 202204
  7. ACETAMINOPHEN [Concomitant]
     Active Substance: ACETAMINOPHEN
     Indication: Prophylaxis
  8. HYDROCHLOROTHIAZIDE\LOSARTAN [Concomitant]
     Active Substance: HYDROCHLOROTHIAZIDE\LOSARTAN
     Indication: Hypertension
     Dosage: 50 MG, 1X/DAY
     Route: 048
     Dates: start: 20220218
  9. AMLODIPINE [Concomitant]
     Active Substance: AMLODIPINE BESYLATE
     Indication: Hypertension
     Dosage: 5 MG, 1X/DAY
     Route: 048
     Dates: start: 20211222

REACTIONS (1)
  - Adrenal insufficiency [Recovered/Resolved]

NARRATIVE: CASE EVENT DATE: 20240801
